FAERS Safety Report 11255358 (Version 1)
Quarter: 2015Q3

REPORT INFORMATION
  Report Type: Spontaneous
  Country: SE (occurrence: SE)
  Receive Date: 20150709
  Receipt Date: 20150709
  Transmission Date: 20151125
  Serious: Yes (Other)
  Sender: FDA-Public Use
  Company Number: SE-NOVOPROD-455393

PATIENT
  Age: 72 Year
  Sex: Female

DRUGS (1)
  1. INSULATARD FLEXPEN [Suspect]
     Active Substance: INSULIN HUMAN
     Indication: PRODUCT USED FOR UNKNOWN INDICATION
     Dosage: UNK
     Route: 065

REACTIONS (6)
  - Dizziness [Unknown]
  - Device issue [Unknown]
  - Headache [Unknown]
  - Hypoglycaemia [Unknown]
  - Visual impairment [Unknown]
  - Palpitations [Unknown]
